FAERS Safety Report 16375207 (Version 1)
Quarter: 2019Q2

REPORT INFORMATION
  Report Type: Spontaneous
  Country: FR (occurrence: FR)
  Receive Date: 20190531
  Receipt Date: 20190531
  Transmission Date: 20190711
  Serious: Yes (Hospitalization)
  Sender: FDA-Public Use
  Company Number: FR-AUROBINDO-AUR-APL-2019-028941

PATIENT

DRUGS (6)
  1. AMOXICILLINE/ACIDE CLAVULANIQ. SANDOZ [Concomitant]
     Active Substance: AMOXICILLIN\CLAVULANIC ACID
     Indication: PRODUCT USED FOR UNKNOWN INDICATION
     Dosage: 3 GRAM, DAILY
     Route: 042
     Dates: start: 20190506
  2. MORPHINE CHLORHYDRATE AGUETTANT [Suspect]
     Active Substance: MORPHINE HYDROCHLORIDE
     Indication: CANCER PAIN
     Dosage: 3 MILLIGRAM, DAILY
     Route: 042
     Dates: start: 20190505
  3. PAROXETINE. [Concomitant]
     Active Substance: PAROXETINE
     Indication: DEPRESSION
     Dosage: 30 MILLIGRAM, DAILY
     Route: 048
     Dates: start: 201901
  4. POLARAMINE [Suspect]
     Active Substance: DEXCHLORPHENIRAMINE MALEATE
     Indication: PRURITUS
     Dosage: 15 MILLIGRAM, DAILY
     Route: 042
     Dates: start: 20190506
  5. INEXIUM [Concomitant]
     Active Substance: ESOMEPRAZOLE
     Indication: PRODUCT USED FOR UNKNOWN INDICATION
     Dosage: 40 MILLIGRAM, DAILY
     Route: 048
  6. CIPROFLOXACIN HYDROCHLORIDE ARROW FILM-COATED TABLET 500MG [Suspect]
     Active Substance: CIPROFLOXACIN HYDROCHLORIDE
     Indication: LUNG INFECTION
     Dosage: 1000 MILLIGRAM, DAILY
     Route: 048
     Dates: start: 20190506, end: 20190509

REACTIONS (1)
  - Hallucinations, mixed [Recovered/Resolved]

NARRATIVE: CASE EVENT DATE: 20190507
